FAERS Safety Report 8015984-2 (Version None)
Quarter: 2011Q4

REPORT INFORMATION
  Report Type: 
  Country: None (occurrence: None)
  Receive Date: 20111230
  Receipt Date: 20111230
  Transmission Date: 20120403
  Serious: Yes (Hospitalization, Other)
  Sender: FDA-Public Use
  Company Number: None

PATIENT
  Age: 26 Year
  Sex: Female
  Weight: 49.895 kg

DRUGS (1)
  1. LAMICTAL [Suspect]
     Indication: COMPLEX PARTIAL SEIZURES
     Dosage: 250 MG/DAY
     Route: 048

REACTIONS (5)
  - RASH [None]
  - ABNORMAL LOSS OF WEIGHT [None]
  - FATIGUE [None]
  - COGNITIVE DISORDER [None]
  - CONFUSIONAL STATE [None]
